FAERS Safety Report 7027270-8 (Version None)
Quarter: 2010Q4

REPORT INFORMATION
  Report Type: 
  Country: None (occurrence: None)
  Receive Date: 20101004
  Receipt Date: 20100921
  Transmission Date: 20110411
  Serious: Yes (Hospitalization, Other)
  Sender: FDA-Public Use
  Company Number: US-ALEXION-A201000969

PATIENT
  Sex: Female

DRUGS (6)
  1. SOLIRIS [Suspect]
     Indication: PAROXYSMAL NOCTURNAL HAEMOGLOBINURIA
     Dosage: 600 MG, QW
     Route: 042
     Dates: start: 20100326, end: 20100416
  2. SOLIRIS [Suspect]
     Dosage: 600 MG, Q2W
     Dates: start: 20100423
  3. FLUCONAZOLE [Concomitant]
     Dosage: UNK
  4. ACYCLOVIR [Concomitant]
     Dosage: UNK
  5. ANTI-THYMOCYTE GLOBULIN RABBIT NOS [Concomitant]
     Indication: APLASTIC ANAEMIA
     Dosage: UNK
     Dates: start: 20100802, end: 20100807
  6. CYCLOSPORINE [Concomitant]

REACTIONS (6)
  - ATRIAL FIBRILLATION [None]
  - BLOOD POTASSIUM DECREASED [None]
  - ESCHERICHIA SEPSIS [None]
  - NAUSEA [None]
  - UROSEPSIS [None]
  - WEIGHT DECREASED [None]
